FAERS Safety Report 24069443 (Version 1)
Quarter: 2024Q3

REPORT INFORMATION
  Report Type: Report from Study
  Country: TR (occurrence: TR)
  Receive Date: 20240710
  Receipt Date: 20240710
  Transmission Date: 20241017
  Serious: No
  Sender: ROCHE
  Company Number: TR-ROCHE-3028093

PATIENT
  Age: 58 Year
  Sex: Male
  Weight: 89.0 kg

DRUGS (30)
  1. ALECTINIB [Suspect]
     Active Substance: ALECTINIB
     Indication: Non-small cell lung cancer metastatic
     Route: 048
     Dates: start: 20211105
  2. ALECTINIB [Suspect]
     Active Substance: ALECTINIB
     Route: 048
     Dates: start: 20211105
  3. DEXAMETHASONE [Concomitant]
     Active Substance: DEXAMETHASONE
     Route: 048
     Dates: start: 20211015, end: 20220212
  4. DEXAMETHASONE [Concomitant]
     Active Substance: DEXAMETHASONE
     Route: 048
     Dates: start: 20220213, end: 20220218
  5. DEXAMETHASONE [Concomitant]
     Active Substance: DEXAMETHASONE
     Route: 048
     Dates: start: 20220219, end: 20220318
  6. KLOREMIN [Concomitant]
     Route: 061
     Dates: start: 20211103
  7. NYSTATIN [Concomitant]
     Active Substance: NYSTATIN
     Route: 048
     Dates: start: 20211103
  8. METOCLOPRAMIDE [Concomitant]
     Active Substance: METOCLOPRAMIDE
     Indication: Nausea
     Route: 048
     Dates: start: 20211018
  9. INFLACORT (TURKIYE) [Concomitant]
     Dosage: 2 INHALATION
     Route: 055
     Dates: start: 20211025
  10. VENTOPIUM PLUS [Concomitant]
     Route: 055
     Dates: start: 20211025
  11. HYZAAR [Concomitant]
     Active Substance: HYDROCHLOROTHIAZIDE\LOSARTAN POTASSIUM
     Indication: Hypertension
     Route: 048
     Dates: start: 201906
  12. LUSTRAL [Concomitant]
     Active Substance: SERTRALINE HYDROCHLORIDE
     Indication: Anxiety
     Route: 048
     Dates: start: 2011
  13. PAROL [Concomitant]
     Active Substance: ACETAMINOPHEN
     Route: 048
     Dates: start: 20211013
  14. MAGNESIE CALCINEE [Concomitant]
     Route: 048
     Dates: start: 20211109
  15. ACETAMINOPHEN\CAFFEINE\CODEINE PHOSPHATE [Concomitant]
     Active Substance: ACETAMINOPHEN\CAFFEINE\CODEINE PHOSPHATE
     Route: 048
     Dates: start: 20211107
  16. PANTOPRAZOLE [Concomitant]
     Active Substance: PANTOPRAZOLE
     Route: 048
     Dates: start: 20211111
  17. MIRTAZAPINE [Concomitant]
     Active Substance: MIRTAZAPINE
     Indication: Depression
     Route: 048
     Dates: start: 20211221
  18. MAGNESIUM ACETYL TAURATE [Concomitant]
     Indication: Fatigue
     Route: 048
     Dates: start: 20211228
  19. AVITAZ [Concomitant]
     Route: 042
     Dates: start: 20220111, end: 20220118
  20. HUMAN RED BLOOD CELL [Concomitant]
     Active Substance: HUMAN RED BLOOD CELL
     Route: 042
     Dates: start: 20220117, end: 20220117
  21. SODIUM CHLORIDE [Concomitant]
     Active Substance: SODIUM CHLORIDE
     Route: 042
     Dates: start: 20220112, end: 20220117
  22. SODIUM CHLORIDE [Concomitant]
     Active Substance: SODIUM CHLORIDE
     Dates: start: 20220118, end: 20220118
  23. SETREX [Concomitant]
     Route: 042
     Dates: start: 20220112, end: 20220118
  24. TRADOLEX [Concomitant]
     Route: 042
     Dates: start: 20220112, end: 20220112
  25. DEKORT [Concomitant]
     Active Substance: DEXAMETHASONE
     Route: 042
     Dates: start: 20220112, end: 20220118
  26. NEUPOGEN [Concomitant]
     Active Substance: FILGRASTIM
     Route: 042
     Dates: start: 20220112, end: 20220121
  27. PHENIRAMINE [Concomitant]
     Active Substance: PHENIRAMINE
     Indication: Hypersensitivity
     Route: 042
     Dates: start: 20220112, end: 20220118
  28. DUPHALAC [Concomitant]
     Active Substance: LACTULOSE
     Indication: Constipation
     Route: 048
     Dates: start: 20220118, end: 20220118
  29. XGEVA [Concomitant]
     Active Substance: DENOSUMAB
     Route: 058
     Dates: start: 20220103
  30. LEVOFLOXACIN [Concomitant]
     Active Substance: LEVOFLOXACIN
     Route: 048
     Dates: start: 20220321

REACTIONS (1)
  - Erythema [Recovered/Resolved]

NARRATIVE: CASE EVENT DATE: 20220215
